FAERS Safety Report 21100762 (Version 1)
Quarter: 2022Q3

REPORT INFORMATION
  Report Type: Spontaneous
  Country: US (occurrence: US)
  Receive Date: 20220719
  Receipt Date: 20220719
  Transmission Date: 20221027
  Serious: No
  Sender: FDA-Public Use
  Company Number: US-PERRIGO-21US009034

PATIENT
  Age: 41 Year
  Sex: Male
  Weight: 74.376 kg

DRUGS (3)
  1. MINOXIDIL [Suspect]
     Active Substance: MINOXIDIL
     Indication: Hair growth rate abnormal
     Dosage: 1 ML, BID
     Route: 061
     Dates: start: 20210609, end: 20210703
  2. FENOFIBRATE [Concomitant]
     Active Substance: FENOFIBRATE
     Indication: Blood cholesterol increased
     Dosage: 160 MG, UNKNOWN
     Route: 065
     Dates: start: 20210623
  3. ATORVASTATIN [Concomitant]
     Active Substance: ATORVASTATIN
     Indication: Blood cholesterol increased
     Dosage: 20 MG, UNKNOWN
     Route: 065
     Dates: start: 20210623

REACTIONS (1)
  - Dandruff [Recovered/Resolved]

NARRATIVE: CASE EVENT DATE: 20210623
